FAERS Safety Report 5105699-2 (Version None)
Quarter: 2006Q3

REPORT INFORMATION
  Report Type: 
  Country: None (occurrence: None)
  Receive Date: 20060915
  Receipt Date: 20060622
  Transmission Date: 20061208
  Serious: No
  Sender: FDA-Public Use
  Company Number: PHEH2006US08188

PATIENT
  Age: 52 Year
  Sex: Female
  Weight: 122 kg

DRUGS (9)
  1. FEMARA [Suspect]
     Indication: BREAST CANCER
     Dosage: 2.5 MG, QD
     Route: 048
     Dates: start: 20060517, end: 20060622
  2. VASOTEC [Concomitant]
     Dosage: 90 MG, UNK
  3. LOPRESSOR [Concomitant]
     Dosage: 60 MG, UNK
  4. ACIPHEX [Concomitant]
     Dosage: 20 MG, UNK
  5. SYNTHROID [Concomitant]
     Dosage: 90 UG, UNK
  6. BUSPAR [Concomitant]
     Dosage: 10 MG, TID
  7. GLUCOPHAGE [Concomitant]
     Dosage: 500 MG, UNK
  8. ASPIRIN [Concomitant]
     Dosage: 81 MG, UNK
  9. OSCAL [Concomitant]
     Dosage: 600/200

REACTIONS (1)
  - ALOPECIA [None]
